FAERS Safety Report 8519149-7 (Version None)
Quarter: 2012Q3

REPORT INFORMATION
  Report Type: 
  Country: None (occurrence: None)
  Receive Date: 20120718
  Receipt Date: 20120710
  Transmission Date: 20120928
  Serious: Yes (Other)
  Sender: FDA-Public Use
  Company Number: US-RB-042262-12

PATIENT
  Age: 51 Year
  Sex: Male

DRUGS (3)
  1. SUBOXONE [Suspect]
     Indication: DRUG DEPENDENCE
     Dosage: VARIOUS DOSES
     Route: 065
     Dates: start: 20120401, end: 20120616
  2. SEROQUEL [Concomitant]
     Indication: DEPRESSION
     Dosage: UNKNOWN DOSING DETAILS
     Route: 065
  3. SUBOXONE [Suspect]
     Dosage: 12-16 MG DAILY
     Route: 060
     Dates: start: 20110501, end: 20120401

REACTIONS (4)
  - DRUG WITHDRAWAL SYNDROME [None]
  - HALLUCINATION, AUDITORY [None]
  - WRONG TECHNIQUE IN DRUG USAGE PROCESS [None]
  - UNDERDOSE [None]
